FAERS Safety Report 24306484 (Version 2)
Quarter: 2024Q4

REPORT INFORMATION
  Report Type: Spontaneous
  Country: US (occurrence: US)
  Receive Date: 20240911
  Receipt Date: 20241115
  Transmission Date: 20250114
  Serious: No
  Sender: SANOFI AVENTIS
  Company Number: US-SA-2024SA259398

PATIENT
  Age: 37 Year
  Sex: Female

DRUGS (2)
  1. DUPIXENT [Suspect]
     Active Substance: DUPILUMAB
     Indication: Eczema
     Dosage: 300 MG, QOW
     Route: 058
     Dates: start: 202407, end: 2024
  2. DUPIXENT [Suspect]
     Active Substance: DUPILUMAB
     Indication: Psoriasis

REACTIONS (6)
  - Bronchitis [Unknown]
  - Eczema [Unknown]
  - Psoriasis [Unknown]
  - Dyspnoea [Unknown]
  - Incorrect dose administered [Unknown]
  - Product use in unapproved indication [Unknown]

NARRATIVE: CASE EVENT DATE: 20240101
